FAERS Safety Report 7434456-7 (Version None)
Quarter: 2011Q2

REPORT INFORMATION
  Report Type: 
  Country: None (occurrence: None)
  Receive Date: 20110425
  Receipt Date: 20110418
  Transmission Date: 20111010
  Serious: Yes (Death)
  Sender: FDA-Public Use
  Company Number: US-CELGENEUS-163-21880-11022135

PATIENT
  Sex: Male

DRUGS (16)
  1. REVLIMID [Suspect]
     Dosage: 25 MILLIGRAM
     Route: 048
     Dates: start: 20090801
  2. DIOVAN [Concomitant]
     Route: 065
  3. LANTUS [Concomitant]
     Route: 065
  4. SPIRONOLACTONE [Concomitant]
     Route: 065
  5. LIPITOR [Concomitant]
     Route: 065
  6. PLAVIX [Concomitant]
     Route: 065
  7. ASPIRIN [Concomitant]
     Route: 065
  8. METFORMIN [Concomitant]
     Route: 065
  9. ZOMETA [Concomitant]
     Route: 065
  10. REVLIMID [Suspect]
     Indication: MULTIPLE MYELOMA
     Dosage: 15 MILLIGRAM
     Route: 048
     Dates: start: 20101001
  11. COREG [Concomitant]
     Route: 065
  12. DEXAMETHASONE [Concomitant]
     Route: 065
  13. FUROSEMIDE [Concomitant]
     Route: 065
  14. K-DUR [Concomitant]
     Route: 065
  15. GLIPIZIDE [Concomitant]
     Route: 065
  16. NOVOLOG [Concomitant]
     Route: 065

REACTIONS (1)
  - DEATH [None]
